FAERS Safety Report 7777610-7 (Version None)
Quarter: 2011Q3

REPORT INFORMATION
  Report Type: 
  Country: None (occurrence: None)
  Receive Date: 20110926
  Receipt Date: 20110915
  Transmission Date: 20111222
  Serious: Yes (Hospitalization, Disabling)
  Sender: FDA-Public Use
  Company Number: JP-BAYER-200915407BYL

PATIENT
  Age: 73 Year
  Sex: Male
  Weight: 59 kg

DRUGS (25)
  1. VALSARTAN [Concomitant]
  2. AMLODIPINE [Concomitant]
  3. VOLTAREN [Concomitant]
  4. PROCHLORPERAZINE [Concomitant]
  5. LAXATIVES [Concomitant]
     Indication: CONSTIPATION
     Route: 054
     Dates: start: 20091210, end: 20091210
  6. MUCOSTA [Concomitant]
     Indication: GASTRITIS PROPHYLAXIS
     Dosage: 800 MG (DAILY DOSE), BID, ORAL
     Route: 048
     Dates: start: 20090101
  7. AMLODIPINE [Concomitant]
     Indication: HYPERTENSION
     Dosage: 5 MG (DAILY DOSE), QD, ORAL
     Route: 048
     Dates: start: 20091130
  8. MAGMITT [Concomitant]
     Dosage: 750 MG (DAILY DOSE), BID, ORAL
     Route: 048
  9. VOLTAREN [Concomitant]
     Indication: CANCER PAIN
     Route: 054
     Dates: start: 20091207, end: 20091208
  10. OXYCONTIN [Concomitant]
     Indication: CANCER PAIN
     Dosage: 10 MG (DAILY DOSE), BID, ORAL
     Route: 048
     Dates: start: 20091208
  11. DIOVAN [Concomitant]
     Indication: HYPERTENSION
     Dosage: 80 MG (DAILY DOSE), QD, ORAL
     Route: 048
     Dates: start: 20091111
  12. MAGMITT [Concomitant]
     Indication: CONSTIPATION
     Dosage: 750 MG (DAILY DOSE), TID, ORAL
     Route: 048
     Dates: start: 20091204, end: 20091210
  13. OXYCONTIN [Concomitant]
  14. LOXONIN [Concomitant]
     Indication: CANCER PAIN
     Route: 048
     Dates: start: 20090101
  15. OXINORM [Concomitant]
     Indication: CANCER PAIN
     Route: 048
     Dates: start: 20091208
  16. CELECOXIB [Concomitant]
     Indication: CANCER PAIN
     Dosage: 200 MG (DAILY DOSE), BID, ORAL
     Route: 048
     Dates: start: 20091119
  17. PURSENNID [Concomitant]
     Indication: CONSTIPATION PROPHYLAXIS
     Dosage: 24 MG (DAILY DOSE), QD, ORAL
     Route: 048
     Dates: start: 20091208
  18. PURSENNID [Concomitant]
  19. MUCOSTA [Concomitant]
  20. PROCHLORPERAZINE [Concomitant]
     Indication: PROPHYLAXIS OF NAUSEA AND VOMITING
     Dosage: 800 MG (DAILY DOSE), BID, ORAL
     Route: 048
     Dates: start: 20091208
  21. SORAFENIB (RAF KINASE INHIBITOR) [Suspect]
     Indication: RENAL CELL CARCINOMA
     Dosage: 400 MG, QD
     Route: 048
     Dates: start: 20091127, end: 20091215
  22. VALSARTAN [Concomitant]
     Indication: HYPERTENSION
     Dosage: 80 MG (DAILY DOSE), , ORAL
     Route: 048
     Dates: start: 20091111
  23. LOXONIN [Concomitant]
  24. DIOVAN [Concomitant]
  25. OXINORM [Concomitant]

REACTIONS (2)
  - RASH [None]
  - THYROIDITIS [None]
